FAERS Safety Report 23694798 (Version 1)
Quarter: 2024Q2

REPORT INFORMATION
  Report Type: Spontaneous
  Country: FR (occurrence: FR)
  Receive Date: 20240402
  Receipt Date: 20240402
  Transmission Date: 20240716
  Serious: No
  Sender: FDA-Public Use
  Company Number: FR-ALKEM LABORATORIES LIMITED-FR-ALKEM-2023-16494

PATIENT
  Age: 25 Year
  Sex: Female

DRUGS (1)
  1. COLCHICINE [Suspect]
     Active Substance: COLCHICINE
     Indication: Product used for unknown indication
     Dosage: 60 MILLIGRAM, ONCE (0.96 MILLIGRAM/KILOGRAM)
     Route: 065

REACTIONS (3)
  - Hypotension [Unknown]
  - Toxicity to various agents [Unknown]
  - Overdose [Unknown]
